FAERS Safety Report 24584547 (Version 1)
Quarter: 2024Q4

REPORT INFORMATION
  Report Type: Spontaneous
  Country: CN (occurrence: CN)
  Receive Date: 20241106
  Receipt Date: 20241106
  Transmission Date: 20250115
  Serious: Yes (Other)
  Sender: PFIZER
  Company Number: CN-PFIZER INC-PV202400142565

PATIENT
  Age: 53 Year
  Sex: Male
  Weight: 61 kg

DRUGS (6)
  1. EPIRUBICIN HYDROCHLORIDE [Suspect]
     Active Substance: EPIRUBICIN HYDROCHLORIDE
     Indication: Plasma cell myeloma
     Dosage: 20 MG, ONCE EVERY 8 DAYS
     Route: 041
     Dates: start: 20240928, end: 20241028
  2. LENALIDOMIDE [Suspect]
     Active Substance: LENALIDOMIDE
     Indication: Plasma cell myeloma
     Dosage: 25 MG, ALTERNATE DAY
     Route: 048
     Dates: start: 20241010, end: 20241018
  3. LENALIDOMIDE [Suspect]
     Active Substance: LENALIDOMIDE
     Dosage: 25 MG, 1X/DAY
     Route: 048
     Dates: start: 20241019, end: 20241031
  4. BORTEZOMIB [Suspect]
     Active Substance: BORTEZOMIB
     Indication: Plasma cell myeloma
     Dosage: 2 MG, ONCE EVERY 4 DAYS
     Route: 058
     Dates: start: 20240928, end: 20241031
  5. SODIUM CHLORIDE [Concomitant]
     Active Substance: SODIUM CHLORIDE
     Indication: Vehicle solution use
     Dosage: 0.8 ML, ONCE EVERY 4 DAYS
     Route: 058
     Dates: start: 20240928, end: 20241031
  6. SODIUM CHLORIDE [Concomitant]
     Active Substance: SODIUM CHLORIDE
     Indication: Vehicle solution use
     Dosage: 250 ML, ONCE EVERY 8 DAYS
     Route: 041
     Dates: start: 20240928, end: 20241028

REACTIONS (1)
  - Alanine aminotransferase increased [Recovering/Resolving]

NARRATIVE: CASE EVENT DATE: 20241017
